FAERS Safety Report 24129678 (Version 1)
Quarter: 2024Q3

REPORT INFORMATION
  Report Type: Spontaneous
  Country: US (occurrence: US)
  Receive Date: 20240724
  Receipt Date: 20240724
  Transmission Date: 20241017
  Serious: No
  Sender: ABBVIE
  Company Number: US-ABBVIE-5841861

PATIENT
  Age: 66 Year
  Sex: Female
  Weight: 49.895 kg

DRUGS (2)
  1. SYNTHROID [Suspect]
     Active Substance: LEVOTHYROXINE SODIUM
     Indication: Blood thyroid stimulating hormone abnormal
     Dosage: FORM STRENGTH: 100 MICROGRAM
     Route: 048
     Dates: start: 2007
  2. HERBALS\TURMERIC [Concomitant]
     Active Substance: HERBALS\TURMERIC
     Indication: Phytotherapy
     Dosage: PILLS

REACTIONS (7)
  - Paraesthesia oral [Recovered/Resolved]
  - Nausea [Recovered/Resolved]
  - Disturbance in attention [Recovered/Resolved]
  - Chest pain [Not Recovered/Not Resolved]
  - Malaise [Recovered/Resolved]
  - Gastric pH decreased [Recovered/Resolved]
  - Disorientation [Recovered/Resolved]

NARRATIVE: CASE EVENT DATE: 20240601
